FAERS Safety Report 4400773-8 (Version None)
Quarter: 2004Q3

REPORT INFORMATION
  Report Type: 
  Country: None (occurrence: None)
  Receive Date: 20040907
  Receipt Date: 20030602
  Transmission Date: 20050211
  Serious: No
  Sender: FDA-Public Use
  Company Number: US-BRISTOL-MYERS SQUIBB COMPANY-12291035

PATIENT
  Age: 66 Year
  Sex: Male
  Weight: 79 kg

DRUGS (4)
  1. COUMADIN [Suspect]
     Indication: MITRAL VALVE REPLACEMENT
     Dosage: 2 MG ON SU, TU, TH, SA; 2.5 MG ON M, W, F
     Route: 048
  2. ATENOLOL [Concomitant]
  3. LIPITOR [Concomitant]
  4. MULTI-VITAMINS [Concomitant]

REACTIONS (4)
  - CONTUSION [None]
  - FOOD INTERACTION [None]
  - INTERNATIONAL NORMALISED RATIO INCREASED [None]
  - PROTHROMBIN TIME ABNORMAL [None]
